FAERS Safety Report 9872921 (Version 2)
Quarter: 2015Q4

REPORT INFORMATION
  Report Type: Report from Study
  Country: US (occurrence: US)
  Receive Date: 20140206
  Receipt Date: 20151130
  Transmission Date: 20160305
  Serious: Yes (Death)
  Sender: FDA-Public Use
  Company Number: US-ROCHE-1320797

PATIENT
  Age: 56 Year
  Sex: Male
  Weight: 62.6 kg

DRUGS (32)
  1. LEUCOVORIN CALCIUM. [Concomitant]
     Active Substance: LEUCOVORIN CALCIUM
     Route: 040
  2. VALIUM [Concomitant]
     Active Substance: DIAZEPAM
     Indication: ANXIETY
     Dosage: PRN, 5MG/ML?RECEIVED ON 23/JAN/2012
     Route: 042
  3. POTASSIUM CHLORIDE. [Concomitant]
     Active Substance: POTASSIUM CHLORIDE
     Dosage: RECEIVED ON 31/JAN/2012
     Route: 048
  4. AVASTIN [Suspect]
     Active Substance: BEVACIZUMAB
     Dosage: 295 MG WITH SODIUM CHLORIDE (0.9 %) 100 ML
     Route: 040
     Dates: start: 20120306
  5. AVASTIN [Suspect]
     Active Substance: BEVACIZUMAB
     Dosage: 305 MG WITH SODIUM CHLORIDE (0.9 %) 100 ML
     Route: 040
     Dates: start: 20120320
  6. IRINOTECAN [Concomitant]
     Active Substance: IRINOTECAN
     Dosage: FOLFIRI
     Route: 040
  7. FLUOROURACIL. [Concomitant]
     Active Substance: FLUOROURACIL
     Dosage: FOLFIRI
     Route: 040
  8. IRINOTECAN [Concomitant]
     Active Substance: IRINOTECAN
     Route: 042
  9. FLUOROURACIL. [Concomitant]
     Active Substance: FLUOROURACIL
     Dosage: RECEIVED ON 06/MAR/2012
     Route: 042
  10. FLEXERIL [Concomitant]
     Active Substance: CYCLOBENZAPRINE HYDROCHLORIDE
     Dosage: TAKEN ONE TIME RECEIVED ON 04/FEB/2012
     Route: 048
  11. DEXAMETHASONE. [Concomitant]
     Active Substance: DEXAMETHASONE
     Dosage: ONE TIME PRIOR TO CHEMOTHERAPY?RECEIVED ON 31/JAN/2012
     Route: 040
  12. FENTANYL. [Concomitant]
     Active Substance: FENTANYL
     Dosage: RECEIVED ON 04/FEB/2012
     Route: 065
  13. LEUCOVORIN CALCIUM. [Concomitant]
     Active Substance: LEUCOVORIN CALCIUM
     Dosage: RECEIVED ON 06/MAR/2012
     Route: 042
  14. LEUCOVORIN CALCIUM. [Concomitant]
     Active Substance: LEUCOVORIN CALCIUM
     Dosage: RECEIVED ON 31/JAN/2012 AND 17/JAN/2012
     Route: 042
  15. FLUOROURACIL. [Concomitant]
     Active Substance: FLUOROURACIL
     Dosage: RECEIVED ON 17/JAN/2012
     Route: 042
  16. FLUOROURACIL. [Concomitant]
     Active Substance: FLUOROURACIL
     Dosage: RECEIVED ON 06/MAR/2012
     Route: 042
  17. KYTRIL [Concomitant]
     Active Substance: GRANISETRON HYDROCHLORIDE
     Dosage: PROR TO CHEMOTHERAPY?RECEIVED ON 17/JAN/2012
     Route: 040
  18. ALOXI [Concomitant]
     Active Substance: PALONOSETRON HYDROCHLORIDE
     Dosage: ONE TIME
     Route: 040
  19. AVASTIN [Suspect]
     Active Substance: BEVACIZUMAB
     Indication: COLON CANCER
     Dosage: 320 MG WITH SODIUM CHLORIDE (0.9 %) 100 ML
     Route: 040
     Dates: start: 20120117
  20. LEUCOVORIN CALCIUM. [Concomitant]
     Active Substance: LEUCOVORIN CALCIUM
     Route: 042
  21. FLUOROURACIL. [Concomitant]
     Active Substance: FLUOROURACIL
     Dosage: RECEIVED ON 31/JAN/2012
     Route: 042
  22. FLUOROURACIL. [Concomitant]
     Active Substance: FLUOROURACIL
     Dosage: RECEIVED ON 17/JAN/2012
     Route: 042
  23. DILAUDID [Concomitant]
     Active Substance: HYDROMORPHONE HYDROCHLORIDE
     Indication: PAIN
     Route: 040
  24. IRINOTECAN [Concomitant]
     Active Substance: IRINOTECAN
     Dosage: RECEIVED ON 17/JAN/2012
     Route: 042
  25. FLUOROURACIL. [Concomitant]
     Active Substance: FLUOROURACIL
     Dosage: INJECTION
     Route: 042
  26. DEXTROSE. [Concomitant]
     Active Substance: DEXTROSE
     Route: 065
  27. AVASTIN [Suspect]
     Active Substance: BEVACIZUMAB
     Indication: METASTASES TO LUNG
     Dosage: 315 MG WITH SODIUM CHLORIDE (0.9 %) 100 ML
     Route: 040
     Dates: start: 20120131
  28. IRINOTECAN [Concomitant]
     Active Substance: IRINOTECAN
     Dosage: RECEIVED ON 06/MAR/2012
     Route: 042
  29. FLUOROURACIL. [Concomitant]
     Active Substance: FLUOROURACIL
     Dosage: RECEIVED ON 31/JAN/2012
     Route: 042
  30. EMEND [Concomitant]
     Active Substance: APREPITANT
     Dosage: 1 HR PRIOR TO CHEMO?RECEIVED ON 17/JAN/2012 AND 31/JAN/2012
     Route: 048
  31. DIPHENHYDRAMINE. [Concomitant]
     Active Substance: DIPHENHYDRAMINE
     Dosage: RECEIVED ON 31/JAN/2012
     Route: 042
  32. OXALIPLATIN. [Concomitant]
     Active Substance: OXALIPLATIN

REACTIONS (3)
  - Malaise [Unknown]
  - Death [Fatal]
  - Disease progression [Unknown]

NARRATIVE: CASE EVENT DATE: 20120821
